FAERS Safety Report 6608937-X (Version None)
Quarter: 2010Q1

REPORT INFORMATION
  Report Type: 
  Country: None (occurrence: None)
  Receive Date: 20100301
  Receipt Date: 20100226
  Transmission Date: 20100710
  Serious: Yes (Hospitalization)
  Sender: FDA-Public Use
  Company Number: GB-ROXANE LABORATORIES, INC.-2010-RO-00208RO

PATIENT
  Age: 2 Year
  Sex: Male
  Weight: 12 kg

DRUGS (2)
  1. PROPRANOLOL HYDROCHLORIDE [Suspect]
     Indication: LONG QT SYNDROME
     Dosage: 36 MG
  2. GLUCOSE [Concomitant]
     Indication: HYPOGLYCAEMIA
     Route: 042

REACTIONS (5)
  - BRADYCARDIA [None]
  - HYPOGLYCAEMIA [None]
  - HYPOTONIA [None]
  - SYNCOPE [None]
  - UNRESPONSIVE TO STIMULI [None]
